FAERS Safety Report 5305314-9 (Version None)
Quarter: 2007Q2

REPORT INFORMATION
  Report Type: 
  Country: None (occurrence: None)
  Receive Date: 20070424
  Receipt Date: 20070412
  Transmission Date: 20071010
  Serious: Yes (Other)
  Sender: FDA-Public Use
  Company Number: PHNU2005DE01118

PATIENT
  Age: 34 Year
  Sex: Male

DRUGS (3)
  1. LIORESAL [Suspect]
     Indication: QUADRIPLEGIA
     Dosage: 25-20-20-20-20
     Route: 048
     Dates: start: 19990101
  2. LIORESAL [Suspect]
     Route: 048
  3. LIORESAL [Suspect]
     Dosage: 85MG/DAY
     Route: 048

REACTIONS (6)
  - ABDOMINAL PAIN UPPER [None]
  - FLATULENCE [None]
  - GASTRIC DISORDER [None]
  - GASTRITIS [None]
  - GASTROOESOPHAGEAL REFLUX DISEASE [None]
  - INFREQUENT BOWEL MOVEMENTS [None]
